FAERS Safety Report 6640919-4 (Version None)
Quarter: 2010Q1

REPORT INFORMATION
  Report Type: 
  Country: None (occurrence: None)
  Receive Date: 20100318
  Receipt Date: 20100302
  Transmission Date: 20100710
  Serious: No
  Sender: FDA-Public Use
  Company Number: US-B.I. PHARMACEUTICALS,INC./RIDGEFIELD-2010-BP-02493BP

PATIENT
  Sex: Male

DRUGS (6)
  1. ATROVENT [Suspect]
     Indication: POSTNASAL DRIP
     Dosage: 168 MCG
     Route: 045
  2. WELCHOL [Concomitant]
     Indication: HYPERCHOLESTEROLAEMIA
     Route: 048
  3. ZETIA [Concomitant]
     Indication: HYPERCHOLESTEROLAEMIA
     Route: 048
  4. PANTOPRAZOLE SOD [Concomitant]
  5. BABY ASPIRIN [Concomitant]
  6. FOLIC ACID [Concomitant]

REACTIONS (1)
  - THERAPEUTIC RESPONSE DECREASED [None]
